FAERS Safety Report 7922175-X (Version None)
Quarter: 2011Q4

REPORT INFORMATION
  Report Type: 
  Country: None (occurrence: None)
  Receive Date: 20111117
  Receipt Date: 20110125
  Transmission Date: 20120403
  Serious: No
  Sender: FDA-Public Use
  Company Number: US-AMGEN-USASP2011000975

PATIENT
  Age: 67 Year
  Sex: Female

DRUGS (1)
  1. ENBREL [Suspect]
     Indication: RHEUMATOID ARTHRITIS
     Dosage: 50 MG, QWK
     Dates: start: 20100726, end: 20101201

REACTIONS (9)
  - PRODUCTIVE COUGH [None]
  - BRONCHITIS [None]
  - FUNGAL INFECTION [None]
  - UPPER RESPIRATORY TRACT CONGESTION [None]
  - PYREXIA [None]
  - FALL [None]
  - COUGH [None]
  - SINUSITIS [None]
  - WRIST FRACTURE [None]
